FAERS Safety Report 9098196 (Version 1)
Quarter: 2013Q1

REPORT INFORMATION
  Report Type: Other
  Country: GB (occurrence: GB)
  Receive Date: 20130213
  Receipt Date: 20130213
  Transmission Date: 20140127
  Serious: Yes (Life-Threatening, Hospitalization, Disabling)
  Sender: FDA-Public Use
  Company Number: GB-WATSON-2013-02211

PATIENT
  Age: 69 Year
  Sex: Female
  Weight: 76 kg

DRUGS (1)
  1. NAPROXEN [Suspect]
     Indication: ARTHRALGIA
     Dosage: 500 MG, 1 AS NECESSARY. 500MG TWICE DAILY OR AS NEEDED
     Route: 048
     Dates: start: 201201, end: 20120909

REACTIONS (4)
  - Subarachnoid haemorrhage [Recovering/Resolving]
  - Medication error [Unknown]
  - Intracranial aneurysm [Recovering/Resolving]
  - Ruptured cerebral aneurysm [None]
